FAERS Safety Report 25902484 (Version 2)
Quarter: 2025Q4

REPORT INFORMATION
  Report Type: Spontaneous
  Country: EU (occurrence: EU)
  Receive Date: 20251009
  Receipt Date: 20251015
  Transmission Date: 20260117
  Serious: Yes (Hospitalization)
  Sender: PURDUE
  Company Number: EU-PURDUE-USA-2025-0321249

PATIENT
  Age: 21 Year
  Sex: Male

DRUGS (1)
  1. OXYCODONE HYDROCHLORIDE [Suspect]
     Active Substance: OXYCODONE HYDROCHLORIDE
     Indication: Drug abuser
     Dosage: 40MG CPR
     Route: 055

REACTIONS (4)
  - Malaise [Recovering/Resolving]
  - Disorganised speech [Recovering/Resolving]
  - Mydriasis [Recovering/Resolving]
  - Drug abuse [Unknown]

NARRATIVE: CASE EVENT DATE: 20250920
